FAERS Safety Report 25840829 (Version 1)
Quarter: 2025Q3

REPORT INFORMATION
  Report Type: Report from Study
  Country: EU (occurrence: EU)
  Receive Date: 20250924
  Receipt Date: 20250924
  Transmission Date: 20251020
  Serious: Yes (Hospitalization, Other)
  Sender: TAKEDA
  Company Number: EU-TAKEDA-2025TUS078916

PATIENT
  Sex: Female

DRUGS (1)
  1. FRUQUINTINIB [Suspect]
     Active Substance: FRUQUINTINIB
     Indication: Colorectal cancer metastatic

REACTIONS (5)
  - Cholangitis [Unknown]
  - Colorectal cancer metastatic [Unknown]
  - Mucosal inflammation [Recovered/Resolved]
  - Hypertension [Unknown]
  - Drug ineffective [Unknown]
